FAERS Safety Report 19271357 (Version 2)
Quarter: 2021Q2

REPORT INFORMATION
  Report Type: Spontaneous
  Country: LT (occurrence: LT)
  Receive Date: 20210518
  Receipt Date: 20210525
  Transmission Date: 20210717
  Serious: Yes (Other)
  Sender: FDA-Public Use
  Company Number: LT-TAKEDA-2021TUS031137

PATIENT

DRUGS (4)
  1. ADVATE [Suspect]
     Active Substance: ANTIHEMOPHILIC FACTOR, HUMAN RECOMBINANT
     Indication: PRODUCT USED FOR UNKNOWN INDICATION
     Route: 065
  2. HEMLIBRA [Concomitant]
     Active Substance: EMICIZUMAB-KXWH
     Indication: PRODUCT USED FOR UNKNOWN INDICATION
     Route: 065
  3. ADVATE [Suspect]
     Active Substance: ANTIHEMOPHILIC FACTOR, HUMAN RECOMBINANT
     Indication: PRODUCT USED FOR UNKNOWN INDICATION
     Route: 065
  4. ADVATE [Suspect]
     Active Substance: ANTIHEMOPHILIC FACTOR, HUMAN RECOMBINANT
     Indication: PRODUCT USED FOR UNKNOWN INDICATION
     Route: 065

REACTIONS (2)
  - Therapy interrupted [Unknown]
  - Haemarthrosis [Unknown]
